FAERS Safety Report 8174725-9 (Version None)
Quarter: 2012Q1

REPORT INFORMATION
  Report Type: 
  Country: None (occurrence: None)
  Receive Date: 20120229
  Receipt Date: 20120221
  Transmission Date: 20120608
  Serious: Yes (Hospitalization, Disabling)
  Sender: FDA-Public Use
  Company Number: BE-GLAXOSMITHKLINE-B0779680A

PATIENT
  Sex: Male

DRUGS (11)
  1. BUMETANIDE [Concomitant]
     Dosage: 1MG PER DAY
     Route: 065
     Dates: start: 20120101
  2. MEDROL [Concomitant]
     Dosage: 16MG PER DAY
     Route: 065
  3. ALDACTONE [Concomitant]
     Dosage: 25MG PER DAY
     Route: 065
  4. PERINDOPRIL ERBUMINE [Concomitant]
     Dosage: 5MG PER DAY
     Route: 065
     Dates: start: 20120101
  5. BISOPROLOL FUMARATE [Concomitant]
     Dosage: 5MG TWICE PER DAY
     Route: 065
  6. WARFARIN SODIUM [Concomitant]
     Route: 065
  7. DEPAKENE [Concomitant]
     Indication: EPILEPSY
     Route: 065
     Dates: start: 20010101
  8. DUTASTERIDE/TAMSULOSIN HYDROCHLORIDE [Suspect]
     Indication: LOWER URINARY TRACT SYMPTOMS
     Dosage: 1U PER DAY
     Route: 065
     Dates: start: 20111121
  9. KEPPRA [Concomitant]
     Indication: EPILEPSY
     Dosage: 1000U TWICE PER DAY
     Route: 065
     Dates: start: 20010101
  10. SIMVASTATIN [Concomitant]
     Dosage: 20MG PER DAY
     Route: 065
  11. PANTOPRAZOLE [Concomitant]
     Dosage: 40MG PER DAY
     Route: 065

REACTIONS (7)
  - ATRIAL FIBRILLATION [None]
  - DYSPNOEA [None]
  - PERICARDIAL EFFUSION [None]
  - CARDIAC FAILURE [None]
  - TACHYCARDIA [None]
  - OEDEMA PERIPHERAL [None]
  - GENERALISED OEDEMA [None]
